FAERS Safety Report 6512276-5 (Version None)
Quarter: 2009Q4

REPORT INFORMATION
  Report Type: 
  Country: None (occurrence: None)
  Receive Date: 20091222
  Receipt Date: 20090713
  Transmission Date: 20100525
  Serious: No
  Sender: FDA-Public Use
  Company Number: US-ASTRAZENECA-2009UW19452

PATIENT
  Age: 90 Year
  Sex: Female
  Weight: 61.7 kg

DRUGS (6)
  1. CRESTOR [Suspect]
     Route: 048
  2. PLAVIX [Concomitant]
  3. WELLBUTRIN [Concomitant]
  4. LASIX [Concomitant]
  5. HEART MEDICATION [Concomitant]
  6. ANTIBIOTIC [Concomitant]

REACTIONS (1)
  - HAEMORRHAGIC DIATHESIS [None]
